FAERS Safety Report 9786974 (Version 2)
Quarter: 2013Q4

REPORT INFORMATION
  Report Type: Spontaneous
  Country: US (occurrence: US)
  Receive Date: 20131227
  Receipt Date: 20131227
  Transmission Date: 20140711
  Serious: Yes (Other)
  Sender: FDA-Public Use
  Company Number: PHHY2013US132101

PATIENT
  Age: 66 Year
  Sex: Female

DRUGS (12)
  1. BACLOFEN INTRATHECAL [Suspect]
     Indication: MUSCLE SPASTICITY
     Dosage: 301 UG DAILY
     Route: 037
  2. BACLOFEN INTRATHECAL [Suspect]
     Dosage: 75 UG DAILY
     Route: 037
  3. CLONIDINE [Suspect]
     Dosage: 45.19 UG DAILY
  4. CLONIDINE [Suspect]
     Dosage: 16 UG DAILY
     Route: 037
  5. ASA [Suspect]
     Dosage: UNK UKN, UNK
  6. ZOLPIDEM TARTRATE [Suspect]
     Dosage: UNK UKN, UNK
  7. TERAZOSIN [Suspect]
     Dosage: UNK UKN, UNK
  8. CYMBALTA [Suspect]
     Dosage: UNK UKN, UNK
  9. GILENYA [Suspect]
     Dosage: UNK UKN, UNK
  10. SYNTHROID [Suspect]
     Dosage: UNK UKN, UNK
  11. OMEPRAZOLE DELAYED RELEASE CAPSULES [Suspect]
     Dosage: UNK UKN, UNK
  12. MVI [Suspect]
     Dosage: UNK UKN, UNK

REACTIONS (13)
  - Weight increased [Unknown]
  - Malaise [Unknown]
  - Adverse event [Unknown]
  - Unevaluable event [Unknown]
  - Local swelling [Unknown]
  - Swelling [Unknown]
  - Fall [Unknown]
  - Contusion [Unknown]
  - Implant site swelling [Unknown]
  - Medical device discomfort [Unknown]
  - Muscle spasticity [Recovering/Resolving]
  - Pruritus [Unknown]
  - Dysphagia [Unknown]
